FAERS Safety Report 7673280-7 (Version None)
Quarter: 2011Q3

REPORT INFORMATION
  Report Type: 
  Country: None (occurrence: None)
  Receive Date: 20110810
  Receipt Date: 20110804
  Transmission Date: 20111222
  Serious: Yes (Other)
  Sender: FDA-Public Use
  Company Number: US-BAYER-2011-054069

PATIENT
  Sex: Male

DRUGS (2)
  1. BLOOD PRESSURE MEDICATION (NOS) [Concomitant]
     Indication: HYPERTENSION
  2. NEXAVAR [Suspect]
     Indication: HEPATIC NEOPLASM MALIGNANT
     Dosage: 400 MG, BID (2PILLS TWICE)
     Route: 048
     Dates: start: 20110601

REACTIONS (8)
  - PAIN IN EXTREMITY [None]
  - ARTHRALGIA [None]
  - AMMONIA INCREASED [None]
  - BLISTER [None]
  - PRURITUS [None]
  - DIARRHOEA [None]
  - RASH GENERALISED [None]
  - GOUT [None]
